FAERS Safety Report 9916969 (Version 2)
Quarter: 2014Q1

REPORT INFORMATION
  Report Type: Spontaneous
  Country: US (occurrence: US)
  Receive Date: 20140221
  Receipt Date: 20140221
  Transmission Date: 20141002
  Serious: Yes (Other)
  Sender: FDA-Public Use
  Company Number: US-GE HEALTHCARE MEDICAL DIAGNOSTICS-OSCN-PR-0810S-0582

PATIENT
  Age: 57 Year
  Sex: Male

DRUGS (6)
  1. OMNISCAN [Suspect]
     Indication: SUBDURAL HAEMATOMA
     Route: 042
     Dates: start: 20050518, end: 20050518
  2. OMNISCAN [Suspect]
     Indication: RENAL FAILURE
     Route: 042
     Dates: start: 20050601, end: 20050601
  3. OMNISCAN [Suspect]
     Route: 042
     Dates: start: 20050613, end: 20050613
  4. OMNISCAN [Suspect]
     Route: 042
     Dates: start: 20050715, end: 20050715
  5. VISIPAQUE [Suspect]
     Indication: PRODUCT USED FOR UNKNOWN INDICATION
     Dates: start: 20050718, end: 20050718
  6. VISIPAQUE [Suspect]
     Dates: start: 20050922, end: 20050922

REACTIONS (1)
  - Nephrogenic systemic fibrosis [Not Recovered/Not Resolved]
